FAERS Safety Report 4393249-8 (Version None)
Quarter: 2004Q3

REPORT INFORMATION
  Report Type: 
  Country: None (occurrence: None)
  Receive Date: 20040702
  Receipt Date: 20040622
  Transmission Date: 20050211
  Serious: Yes (Hospitalization)
  Sender: FDA-Public Use
  Company Number: GB-JNJFOC-20040605460

PATIENT
  Age: 60 Year
  Sex: Male

DRUGS (12)
  1. REMICADE [Suspect]
     Indication: RHEUMATOID ARTHRITIS
     Dosage: 330 MG INTRAVENOUS
     Route: 042
     Dates: start: 20030710
  2. METHOTREXATE [Concomitant]
  3. FOLIC ACID [Concomitant]
  4. ALLOPURINOL [Concomitant]
  5. VALSARTAN [Concomitant]
  6. CALCICHEN (CALCIUM CARBONATE) [Concomitant]
  7. DICLOFENAC [Concomitant]
  8. SIMVASTATIN [Concomitant]
  9. ALBUTEROL SULFATE [Concomitant]
  10. OMEPRAZOLE [Concomitant]
  11. ACETAMINOPHEN [Concomitant]
  12. SULFASALAZINE [Concomitant]

REACTIONS (2)
  - HEMIPARESIS [None]
  - SUPRAVENTRICULAR EXTRASYSTOLES [None]
